FAERS Safety Report 21601045 (Version 4)
Quarter: 2022Q4

REPORT INFORMATION
  Report Type: Report from Study
  Country: US (occurrence: US)
  Receive Date: 20221116
  Receipt Date: 20221219
  Transmission Date: 20230113
  Serious: No
  Sender: FDA-Public Use
  Company Number: US-002147023-NVSC2022US256823

PATIENT
  Sex: Male

DRUGS (1)
  1. ENTRESTO [Suspect]
     Active Substance: SACUBITRIL\VALSARTAN
     Indication: Product used for unknown indication
     Dosage: UNK, BID (49/51 MG)
     Route: 048
     Dates: start: 202210

REACTIONS (4)
  - Dyspnoea [Recovering/Resolving]
  - Fatigue [Unknown]
  - Nausea [Unknown]
  - Cough [Recovering/Resolving]
